FAERS Safety Report 21451285 (Version 1)
Quarter: 2022Q4

REPORT INFORMATION
  Report Type: Spontaneous
  Country: US (occurrence: US)
  Receive Date: 20221013
  Receipt Date: 20221013
  Transmission Date: 20230113
  Serious: No
  Sender: FDA-Public Use
  Company Number: US-INDIVIOR US-INDV-133060-2022

PATIENT
  Age: 41 Year
  Sex: Male

DRUGS (5)
  1. SUBOXONE [Suspect]
     Active Substance: BUPRENORPHINE HYDROCHLORIDE\NALOXONE HYDROCHLORIDE
     Indication: Drug dependence
     Dosage: 4 MILLIGRAM, BID (ONE IN THE MORNING AND ONE IN THE AFTERNOON)
     Route: 060
     Dates: start: 202105, end: 2021
  2. SUBOXONE [Suspect]
     Active Substance: BUPRENORPHINE HYDROCHLORIDE\NALOXONE HYDROCHLORIDE
     Dosage: 8 MILLIGRAM, TID (TWO IN THE MORNING, TWO IN THE AFTERNOON AND TWO AT NIGHT)
     Route: 060
     Dates: start: 2021, end: 2021
  3. SUBOXONE [Suspect]
     Active Substance: BUPRENORPHINE HYDROCHLORIDE\NALOXONE HYDROCHLORIDE
     Dosage: UNK (ONE DAY ON AND ONE DAY OFF)
     Route: 060
     Dates: start: 2021, end: 2021
  4. SUBOXONE [Suspect]
     Active Substance: BUPRENORPHINE HYDROCHLORIDE\NALOXONE HYDROCHLORIDE
     Dosage: 2 MILLIGRAM, QD
     Route: 060
     Dates: start: 2021, end: 202112
  5. BUPRENORPHINE [Suspect]
     Active Substance: BUPRENORPHINE
     Indication: Drug dependence
     Dosage: UNK (COUPLE OF MILLIGRAMS FOR EVERY THREE OR FOUR DAYS)
     Route: 060
     Dates: start: 202112, end: 20220213

REACTIONS (5)
  - Inappropriate schedule of product discontinuation [Recovered/Resolved]
  - Oral administration complication [Unknown]
  - Inappropriate schedule of product administration [Recovered/Resolved]
  - Intentional product use issue [Recovered/Resolved]
  - Headache [Unknown]

NARRATIVE: CASE EVENT DATE: 20210101
